FAERS Safety Report 10082125 (Version 2)
Quarter: 2014Q2

REPORT INFORMATION
  Report Type: Spontaneous
  Country: TR (occurrence: TR)
  Receive Date: 20140416
  Receipt Date: 20140501
  Transmission Date: 20141212
  Serious: Yes (Other)
  Sender: FDA-Public Use
  Company Number: TR-WATSON-2014-07319

PATIENT
  Age: 82 Year
  Sex: Male

DRUGS (1)
  1. METHYLPREDNISOLONE (UNKNOWN) [Suspect]
     Indication: PEMPHIGOID
     Dosage: 4 MG, DAILY
     Route: 065

REACTIONS (2)
  - Loeffler^s syndrome [Recovering/Resolving]
  - Strongyloidiasis [Recovered/Resolved]
